FAERS Safety Report 10640001 (Version 1)
Quarter: 2014Q4

REPORT INFORMATION
  Report Type: Spontaneous
  Country: US (occurrence: None)
  Receive Date: 20141205
  Receipt Date: 20141205
  Transmission Date: 20150529
  Serious: No
  Sender: FDA-Public Use
  Company Number: None

PATIENT
  Age: 53 Year
  Sex: Female

DRUGS (1)
  1. COPAXONE [Suspect]
     Active Substance: GLATIRAMER ACETATE
     Indication: MULTIPLE SCLEROSIS
     Dosage: 3XWEEKLY
     Route: 058
     Dates: start: 20111214, end: 20141204

REACTIONS (2)
  - Nuclear magnetic resonance imaging brain abnormal [None]
  - Central nervous system lesion [None]

NARRATIVE: CASE EVENT DATE: 20141204
